FAERS Safety Report 6162682-6 (Version None)
Quarter: 2009Q2

REPORT INFORMATION
  Report Type: 
  Country: None (occurrence: None)
  Receive Date: 20090417
  Receipt Date: 20090410
  Transmission Date: 20091009
  Serious: Yes (Other)
  Sender: FDA-Public Use
  Company Number: 2009JP001772

PATIENT
  Age: 83 Year
  Sex: Male

DRUGS (3)
  1. SOLIFENACIN BLINDED(CODE NOT BROKEN) TABLET, UNKNOWN [Suspect]
     Indication: HYPERTONIC BLADDER
     Dosage: 2 DF, D, ORAL
     Route: 048
     Dates: start: 20090129
  2. HARNAL(TAMSULOSIN) ORODISPERSIBLE CR TABLET [Suspect]
     Indication: BENIGN PROSTATIC HYPERPLASIA
     Dosage: 0.2 MG//D, ORAL
     Route: 048
     Dates: start: 20080918
  3. PRORANON (PRANOPROFEN) EYE DROP [Concomitant]

REACTIONS (1)
  - BLOOD POTASSIUM INCREASED [None]
